FAERS Safety Report 20170687 (Version 1)
Quarter: 2021Q4

REPORT INFORMATION
  Report Type: Spontaneous
  Country: US (occurrence: None)
  Receive Date: 20211210
  Receipt Date: 20211210
  Transmission Date: 20220303
  Serious: No
  Sender: FDA-Public Use
  Company Number: None

PATIENT
  Age: 53 Year
  Sex: Male

DRUGS (1)
  1. OXYBUTYNIN [Suspect]
     Active Substance: OXYBUTYNIN
     Dates: start: 20211122, end: 20211203

REACTIONS (3)
  - Product quality issue [None]
  - Urinary incontinence [None]
  - Manufacturing issue [None]

NARRATIVE: CASE EVENT DATE: 20211122
